FAERS Safety Report 6705771-7 (Version None)
Quarter: 2010Q2

REPORT INFORMATION
  Report Type: 
  Country: None (occurrence: None)
  Receive Date: 20100503
  Receipt Date: 20100422
  Transmission Date: 20101027
  Serious: Yes (Other)
  Sender: FDA-Public Use
  Company Number: US-JNJFOC-20091108007

PATIENT
  Sex: Female
  Weight: 54.89 kg

DRUGS (1)
  1. REMICADE [Suspect]
     Indication: RHEUMATOID ARTHRITIS
     Route: 042
     Dates: start: 20090901

REACTIONS (2)
  - BASAL CELL CARCINOMA [None]
  - POST PROCEDURAL INFECTION [None]
